FAERS Safety Report 8559337-7 (Version None)
Quarter: 2012Q3

REPORT INFORMATION
  Report Type: 
  Country: None (occurrence: None)
  Receive Date: 20120720
  Receipt Date: 20120524
  Transmission Date: 20120928
  Serious: Yes (Other)
  Sender: FDA-Public Use
  Company Number: TOR 2012-0009

PATIENT
  Sex: Female

DRUGS (3)
  1. ACETAMINOPHEN [Concomitant]
  2. MORPHINE [Concomitant]
  3. FARESTON [Suspect]
     Dates: start: 20120120

REACTIONS (2)
  - HAEMATOTOXICITY [None]
  - WHITE BLOOD CELL COUNT DECREASED [None]
